FAERS Safety Report 15895081 (Version 5)
Quarter: 2019Q1

REPORT INFORMATION
  Report Type: Spontaneous
  Country: US (occurrence: US)
  Receive Date: 20190131
  Receipt Date: 20190319
  Transmission Date: 20190417
  Serious: Yes (Other)
  Sender: FDA-Public Use
  Company Number: US-AMGEN-USASP2019014008

PATIENT
  Age: 39 Year
  Sex: Female
  Weight: 53.06 kg

DRUGS (2)
  1. ENBREL [Suspect]
     Active Substance: ETANERCEPT
     Indication: PSORIASIS
  2. ENBREL [Suspect]
     Active Substance: ETANERCEPT
     Indication: RHEUMATOID ARTHRITIS
     Dosage: 50 MILLIGRAM
     Route: 065
     Dates: start: 20190111

REACTIONS (11)
  - Incorrect dose administered by device [Unknown]
  - Malaise [Not Recovered/Not Resolved]
  - Wrong technique in product usage process [Unknown]
  - Ulcerative keratitis [Not Recovered/Not Resolved]
  - Pain [Unknown]
  - Oropharyngeal pain [Unknown]
  - Device malfunction [Unknown]
  - Blindness [Unknown]
  - Ill-defined disorder [Not Recovered/Not Resolved]
  - Nasal congestion [Unknown]
  - Chest pain [Unknown]

NARRATIVE: CASE EVENT DATE: 201901
